FAERS Safety Report 6273547-3 (Version None)
Quarter: 2009Q3

REPORT INFORMATION
  Report Type: 
  Country: None (occurrence: None)
  Receive Date: 20090720
  Receipt Date: 20090714
  Transmission Date: 20100115
  Serious: Yes (Life-Threatening, Hospitalization, Other)
  Sender: FDA-Public Use
  Company Number: IN-ROXANE LABORATORIES, INC.-2009-RO-00688RO

PATIENT
  Age: 26 Year
  Sex: Female

DRUGS (17)
  1. FLUCONAZOLE [Suspect]
     Indication: ACINETOBACTER INFECTION
     Dosage: 200 MG
     Route: 048
  2. FLUCONAZOLE [Suspect]
     Indication: CANDIDURIA
     Route: 042
  3. MORPHINE [Suspect]
     Indication: SEDATION
  4. MIDAZOLAM HCL [Suspect]
     Indication: SEDATION
  5. DOPAMINE HCL [Suspect]
  6. IMIPENEM [Suspect]
     Indication: ANTIBIOTIC THERAPY
  7. CIPROFLOXACIN [Suspect]
     Indication: ANTIBIOTIC THERAPY
  8. METRONIDAZOLE [Suspect]
     Indication: ANTIBIOTIC THERAPY
  9. INSULIN [Suspect]
  10. HEPARIN [Suspect]
  11. CALCIUM [Suspect]
     Indication: BLOOD CALCIUM DECREASED
     Route: 042
  12. POTASSIUM CHLORIDE [Suspect]
     Indication: ELECTROLYTE SUBSTITUTION THERAPY
  13. MAGNESIUM SULFATE [Suspect]
     Indication: BLOOD MAGNESIUM DECREASED
     Route: 042
  14. LIGNOCAINE [Suspect]
     Indication: ARRHYTHMIA
  15. LIGNOCAINE [Suspect]
  16. AMPHOTERICIN B [Concomitant]
     Indication: ELECTROCARDIOGRAM QT PROLONGED
     Dosage: 30 MG
  17. RED BLOOD CELLS [Concomitant]

REACTIONS (11)
  - ACINETOBACTER INFECTION [None]
  - BLOOD MAGNESIUM DECREASED [None]
  - CANDIDURIA [None]
  - CARDIAC ARREST [None]
  - ELECTROCARDIOGRAM QT PROLONGED [None]
  - HYPOCALCAEMIA [None]
  - HYPOKALAEMIA [None]
  - HYPOPHOSPHATAEMIA [None]
  - ILEUS PARALYTIC [None]
  - TORSADE DE POINTES [None]
  - VENTRICULAR FIBRILLATION [None]
